FAERS Safety Report 20822866 (Version 1)
Quarter: 2022Q2

REPORT INFORMATION
  Report Type: Spontaneous
  Country: US (occurrence: US)
  Receive Date: 20220512
  Receipt Date: 20220512
  Transmission Date: 20220720
  Serious: No
  Sender: FDA-Public Use
  Company Number: US-GLAUKOS-AVE?2022?0028?AE

PATIENT
  Age: 40 Year
  Sex: Female

DRUGS (1)
  1. RIBOFLAVIN 5^-PHOSPHATE SODIUM [Suspect]
     Active Substance: RIBOFLAVIN 5^-PHOSPHATE SODIUM
     Indication: Keratoconus
     Dosage: LEFT EYE
     Route: 047
     Dates: start: 20211025, end: 20211025

REACTIONS (7)
  - Night blindness [Not Recovered/Not Resolved]
  - Eye irritation [Not Recovered/Not Resolved]
  - Impaired driving ability [Not Recovered/Not Resolved]
  - Dry eye [Not Recovered/Not Resolved]
  - Visual impairment [Not Recovered/Not Resolved]
  - Eye pain [Unknown]
  - Visual impairment [Not Recovered/Not Resolved]
